FAERS Safety Report 4492667-7 (Version None)
Quarter: 2004Q4

REPORT INFORMATION
  Report Type: 
  Country: None (occurrence: None)
  Receive Date: 20041102
  Receipt Date: 20041102
  Transmission Date: 20050328
  Serious: Yes (Death)
  Sender: FDA-Public Use
  Company Number: None

PATIENT
  Sex: Male
  Weight: 70.8 kg

DRUGS (18)
  1. DOXORUBICIN [Suspect]
     Indication: ANAPLASTIC LARGE CELL LYMPHOMA T- AND NULL-CELL TYPES
     Dosage: 75 MG/M2/IV/X 1
     Route: 042
     Dates: start: 20041028
  2. VINCRISTINE [Suspect]
     Indication: ANAPLASTIC LARGE CELL LYMPHOMA T- AND NULL-CELL TYPES
     Dosage: 1.5 MG/M2 / IVP *1
     Route: 042
     Dates: start: 20041028
  3. SENOKOT [Concomitant]
  4. ZOFRAN [Concomitant]
  5. VICODIN [Concomitant]
  6. PREVACID [Concomitant]
  7. SORBITOL [Concomitant]
  8. MOTRIN [Concomitant]
  9. NAPROXEN [Concomitant]
  10. TRENTAL [Concomitant]
  11. PENTOXIFYLLINE [Concomitant]
  12. AMBIEN [Concomitant]
  13. ATIVAN [Concomitant]
  14. EPOGEN [Concomitant]
  15. VISTARIL [Concomitant]
  16. PERCOCET [Concomitant]
  17. TYLENOL [Concomitant]
  18. LASIX [Concomitant]

REACTIONS (17)
  - ASPARTATE AMINOTRANSFERASE INCREASED [None]
  - CARDIAC ARREST [None]
  - COMA [None]
  - CONVULSION [None]
  - DIARRHOEA [None]
  - DISORIENTATION [None]
  - DISSEMINATED INTRAVASCULAR COAGULATION [None]
  - HEPATIC FAILURE [None]
  - HYPERHIDROSIS [None]
  - HYPOTENSION [None]
  - OXYGEN SATURATION DECREASED [None]
  - PYREXIA [None]
  - RENAL FAILURE [None]
  - RESPIRATORY RATE INCREASED [None]
  - SALIVARY HYPERSECRETION [None]
  - TACHYCARDIA [None]
  - TUMOUR LYSIS SYNDROME [None]
